FAERS Safety Report 5951510-7 (Version None)
Quarter: 2008Q4

REPORT INFORMATION
  Report Type: 
  Country: None (occurrence: None)
  Receive Date: 20081113
  Receipt Date: 20081103
  Transmission Date: 20090506
  Serious: Yes (Life-Threatening, Hospitalization, Other)
  Sender: FDA-Public Use
  Company Number: HK-ROCHE-591203

PATIENT
  Sex: Female
  Weight: 34 kg

DRUGS (6)
  1. CAPECITABINE [Suspect]
     Indication: NASOPHARYNGEAL CANCER
     Dosage: TEMPORARILY INTERRUPTED. ADMINISTERED FOR 14 DAYS FOLLOWED BY 7 DAYS REST
     Route: 048
     Dates: start: 20080929
  2. OXALIPLATIN [Suspect]
     Indication: NASOPHARYNGEAL CANCER
     Dosage: 130MG/M2 INFUSION DAY 1, REPEATED EVERY 21 DAYS (PER PROTOCOL); PERMANENTLY DISCONTINUED
     Route: 042
     Dates: start: 20080929, end: 20080929
  3. DOLOGESIC [Concomitant]
     Dates: start: 20081006, end: 20081009
  4. PEPCIDINE [Concomitant]
     Dates: start: 20081006, end: 20081010
  5. NAPROSYN [Concomitant]
     Dates: start: 20081006, end: 20081009
  6. PYRIDOXINE HCL [Concomitant]
     Dates: start: 20081006, end: 20081009

REACTIONS (7)
  - DUODENAL ULCER [None]
  - EPISTAXIS [None]
  - FEBRILE NEUTROPENIA [None]
  - GASTRIC ULCER [None]
  - GASTROINTESTINAL HAEMORRHAGE [None]
  - PANCYTOPENIA [None]
  - RENAL IMPAIRMENT [None]
